FAERS Safety Report 7432746-5 (Version None)
Quarter: 2011Q2

REPORT INFORMATION
  Report Type: 
  Country: None (occurrence: None)
  Receive Date: 20110422
  Receipt Date: 20110418
  Transmission Date: 20111010
  Serious: Yes (Other)
  Sender: FDA-Public Use
  Company Number: A0923369A

PATIENT
  Age: 10 Year
  Sex: Male

DRUGS (6)
  1. FLONASE [Concomitant]
  2. PREDNISONE [Concomitant]
  3. ADVAIR HFA [Suspect]
     Indication: ASTHMA
     Dosage: 1PUFF TWICE PER DAY
     Route: 055
     Dates: start: 20090101
  4. SINGULAIR [Concomitant]
  5. ALBUTEROL [Concomitant]
  6. CLARITIN [Concomitant]

REACTIONS (2)
  - ASTHMA [None]
  - PRODUCT QUALITY ISSUE [None]
